FAERS Safety Report 13304034 (Version 15)
Quarter: 2021Q2

REPORT INFORMATION
  Report Type: Report from Study
  Country: DE (occurrence: DE)
  Receive Date: 20170307
  Receipt Date: 20210622
  Transmission Date: 20210716
  Serious: Yes (Death, Life-Threatening, Hospitalization, Other)
  Sender: FDA-Public Use
  Company Number: PHHY2017DE010026

PATIENT
  Age: 68 Year
  Sex: Female
  Weight: 55 kg

DRUGS (19)
  1. TAFINLAR [Suspect]
     Active Substance: DABRAFENIB MESYLATE
     Indication: METASTATIC MALIGNANT MELANOMA
     Dosage: 150 MG, BID
     Route: 048
     Dates: start: 20161019, end: 20161221
  2. BISOPROLOL [Concomitant]
     Active Substance: BISOPROLOL
     Indication: PRODUCT USED FOR UNKNOWN INDICATION
     Dosage: 2.5 MG, QD
     Route: 048
  3. ASPIRIN. [Concomitant]
     Active Substance: ASPIRIN
     Indication: CHEMOTHERAPY
     Dosage: 100 MG
     Route: 048
  4. FRAGMIN P [Concomitant]
     Active Substance: DALTEPARIN SODIUM
     Dosage: 2500 IU
     Route: 058
     Dates: start: 20170103, end: 20170114
  5. TORASEMIDE [Concomitant]
     Active Substance: TORSEMIDE
     Indication: PRODUCT USED FOR UNKNOWN INDICATION
     Dosage: 2.5 MG, QD
     Route: 048
  6. FRAGMIN P [Concomitant]
     Active Substance: DALTEPARIN SODIUM
     Dosage: 5000 IU, BID
     Route: 058
     Dates: start: 20161222, end: 201612
  7. FRAGMIN P [Concomitant]
     Active Substance: DALTEPARIN SODIUM
     Indication: PRODUCT USED FOR UNKNOWN INDICATION
     Dosage: 2500 IU, BID
     Route: 058
     Dates: start: 20161019, end: 20161029
  8. TRAMETINIB [Suspect]
     Active Substance: TRAMETINIB
     Indication: METASTATIC MALIGNANT MELANOMA
     Dosage: 2 MG, QD
     Route: 048
     Dates: start: 20161019, end: 20161221
  9. PANTOPRAZOLE [Concomitant]
     Active Substance: PANTOPRAZOLE
     Indication: PRODUCT USED FOR UNKNOWN INDICATION
     Dosage: 40 MG
     Route: 048
  10. FRAGMIN P [Concomitant]
     Active Substance: DALTEPARIN SODIUM
     Dosage: 2500 IU
     Route: 058
     Dates: start: 20170130, end: 20170203
  11. FRESUBIN [Concomitant]
     Active Substance: AMINO ACIDS\DEXTROSE\ELECTROLYTES NOS\SOYBEAN OIL\VITAMINS
     Indication: PRODUCT USED FOR UNKNOWN INDICATION
     Dosage: 200 ML, PRN
     Route: 065
     Dates: start: 20161020, end: 20161029
  12. STEROFUNDIN [Concomitant]
     Active Substance: CALCIUM CHLORIDE\MAGNESIUM CHLORIDE\POTASSIUM CHLORIDE\SODIUM ACETATE\SODIUM CHLORIDE
     Dosage: 500 ML, QD
     Route: 042
     Dates: start: 20170103, end: 20170114
  13. BENURON [Concomitant]
     Active Substance: ACETAMINOPHEN
     Indication: PAIN
     Dosage: 1 G, PRN
     Route: 048
     Dates: start: 20161027, end: 20161213
  14. CALCIVIT [Concomitant]
     Indication: PRODUCT USED FOR UNKNOWN INDICATION
     Dosage: 600 MG, BID
     Route: 048
  15. BENURON [Concomitant]
     Active Substance: ACETAMINOPHEN
     Indication: PYREXIA
  16. TAFINLAR [Suspect]
     Active Substance: DABRAFENIB MESYLATE
     Dosage: 100 MG, BID
     Route: 048
     Dates: start: 20161222, end: 20170111
  17. TRAMETINIB [Suspect]
     Active Substance: TRAMETINIB
     Dosage: 1.5 MG, QD
     Route: 048
     Dates: start: 20161222, end: 20161226
  18. STEROFUNDIN [Concomitant]
     Active Substance: CALCIUM CHLORIDE\MAGNESIUM CHLORIDE\POTASSIUM CHLORIDE\SODIUM ACETATE\SODIUM CHLORIDE
     Indication: PRODUCT USED FOR UNKNOWN INDICATION
     Dosage: 500 ML, QD
     Route: 042
     Dates: start: 20161020, end: 20171027
  19. ZOLEDRONIC ACID. [Concomitant]
     Active Substance: ZOLEDRONIC ACID
     Indication: MALIGNANT MELANOMA
     Dosage: 4 MG, QMO
     Route: 042
     Dates: start: 20161026

REACTIONS (27)
  - Metastases to central nervous system [Unknown]
  - Gamma-glutamyltransferase increased [Unknown]
  - Blood lactate dehydrogenase increased [Unknown]
  - Blood glucose increased [Unknown]
  - Malignant neoplasm progression [Fatal]
  - Lipase increased [Recovering/Resolving]
  - Lipase increased [Recovering/Resolving]
  - Neutrophil count increased [Unknown]
  - Blood alkaline phosphatase increased [Unknown]
  - Blood uric acid decreased [Unknown]
  - Aspartate aminotransferase increased [Unknown]
  - Blood phosphorus decreased [Unknown]
  - Nausea [Recovered/Resolved]
  - Metastasis [Fatal]
  - Brain oedema [Unknown]
  - Syncope [Recovered/Resolved]
  - Blood fibrinogen increased [Unknown]
  - Blood sodium decreased [Unknown]
  - Mean cell haemoglobin concentration decreased [Unknown]
  - Cataract [Unknown]
  - Haemoglobin decreased [Unknown]
  - Metastatic malignant melanoma [Fatal]
  - Pyrexia [Recovered/Resolved]
  - Blood calcium decreased [Unknown]
  - Blood creatine phosphokinase decreased [Unknown]
  - C-reactive protein increased [Unknown]
  - Platelet count increased [Unknown]

NARRATIVE: CASE EVENT DATE: 20161027
